FAERS Safety Report 5506022-1 (Version None)
Quarter: 2007Q4

REPORT INFORMATION
  Report Type: 
  Country: None (occurrence: None)
  Receive Date: 20071101
  Receipt Date: 20071101
  Transmission Date: 20080405
  Serious: Yes (Other)
  Sender: FDA-Public Use
  Company Number: None

PATIENT
  Age: 55 Year
  Sex: Male
  Weight: 172.3669 kg

DRUGS (3)
  1. CLONAZEPAM [Suspect]
     Indication: ANXIETY
     Dosage: 1MG PRN OR DAILY PO
     Route: 048
     Dates: start: 20071015, end: 20071029
  2. CLONAZEPAM [Suspect]
     Indication: DEPRESSION
     Dosage: 1MG PRN OR DAILY PO
     Route: 048
     Dates: start: 20071015, end: 20071029
  3. CLONAZEPAM [Suspect]

REACTIONS (2)
  - DRUG INEFFECTIVE [None]
  - PHARMACEUTICAL PRODUCT COMPLAINT [None]
